FAERS Safety Report 12204359 (Version 4)
Quarter: 2016Q4

REPORT INFORMATION
  Report Type: Report from Study
  Country: DE (occurrence: DE)
  Receive Date: 20160323
  Receipt Date: 20161130
  Transmission Date: 20170207
  Serious: Yes (Hospitalization)
  Sender: FDA-Public Use
  Company Number: DE-ROCHE-1725734

PATIENT
  Age: 55 Year
  Sex: Female
  Weight: 50 kg

DRUGS (13)
  1. DOXORUBICIN HYDROCHLORIDE. [Suspect]
     Active Substance: DOXORUBICIN HYDROCHLORIDE
     Indication: HER-2 POSITIVE BREAST CANCER
     Dosage: DATE OF LAST DOSE PRIOR TO SAE: 25/FEB/2016
     Route: 042
     Dates: start: 20151120, end: 20160225
  2. ESOMEPRAZOL [Concomitant]
     Active Substance: ESOMEPRAZOLE
     Route: 065
  3. PERTUZUMAB [Suspect]
     Active Substance: PERTUZUMAB
     Dosage: MAINTENANCE DOSE?DATE OF LAST DOSE PRIOR TO SAE: 16/FEB/2016
     Route: 042
     Dates: end: 20160216
  4. EMEND [Concomitant]
     Active Substance: APREPITANT
     Route: 042
  5. CLEMASTIN [Concomitant]
     Active Substance: CLEMASTINE
     Route: 042
  6. ALOXI [Concomitant]
     Active Substance: PALONOSETRON HYDROCHLORIDE
     Route: 042
  7. SALBUTAMOL/IPRATROPIUM [Concomitant]
     Route: 065
  8. PERTUZUMAB [Suspect]
     Active Substance: PERTUZUMAB
     Indication: HER-2 POSITIVE BREAST CANCER
     Dosage: LOADING DOSE
     Route: 042
     Dates: start: 20151120
  9. RANITIDIN [Concomitant]
     Active Substance: RANITIDINE HYDROCHLORIDE
     Route: 042
  10. PREDNISOLONE. [Concomitant]
     Active Substance: PREDNISOLONE
     Route: 065
  11. TRASTUZUMAB [Suspect]
     Active Substance: TRASTUZUMAB
     Indication: HER-2 POSITIVE BREAST CANCER
     Dosage: LOADING DOSE
     Route: 042
     Dates: start: 20151120
  12. TRASTUZUMAB [Suspect]
     Active Substance: TRASTUZUMAB
     Dosage: MAINTENANCE DOSE?DATE OF LAST DOSE PRIOR TO SAE: 16/FEB/2016
     Route: 042
     Dates: end: 20160216
  13. PACLITAXEL. [Suspect]
     Active Substance: PACLITAXEL
     Indication: HER-2 POSITIVE BREAST CANCER
     Dosage: DATE OF LAST DOSE PRIOR TO SAE: 25/FEB/2016
     Route: 042
     Dates: start: 20151120, end: 20160225

REACTIONS (1)
  - Pneumonitis [Recovered/Resolved]

NARRATIVE: CASE EVENT DATE: 20160308
